FAERS Safety Report 11780541 (Version 2)
Quarter: 2015Q4

REPORT INFORMATION
  Report Type: Spontaneous
  Country: SE (occurrence: SE)
  Receive Date: 20151126
  Receipt Date: 20151202
  Transmission Date: 20160305
  Serious: Yes (Other)
  Sender: FDA-Public Use
  Company Number: SE-BRISTOL-MYERS SQUIBB COMPANY-BMS-2015-078830

PATIENT
  Age: 67 Year
  Sex: Female

DRUGS (1)
  1. ORENCIA [Suspect]
     Active Substance: ABATACEPT
     Indication: RHEUMATOID ARTHRITIS
     Route: 058
     Dates: start: 20150903, end: 20151106

REACTIONS (5)
  - Alopecia [Unknown]
  - Swollen tongue [Unknown]
  - Mood altered [Unknown]
  - Anger [Unknown]
  - Flushing [Unknown]

NARRATIVE: CASE EVENT DATE: 20150903
